FAERS Safety Report 5072223-2 (Version None)
Quarter: 2006Q3

REPORT INFORMATION
  Report Type: 
  Country: None (occurrence: None)
  Receive Date: 20060807
  Receipt Date: 20060801
  Transmission Date: 20061208
  Serious: Yes (Other)
  Sender: FDA-Public Use
  Company Number: US-AVENTIS-200616389US

PATIENT
  Age: 11 Year
  Sex: Female

DRUGS (1)
  1. DDAVP [Suspect]
     Route: 048
     Dates: start: 20060601

REACTIONS (1)
  - CONVULSION [None]
